FAERS Safety Report 24060164 (Version 1)
Quarter: 2024Q3

REPORT INFORMATION
  Report Type: Spontaneous
  Country: US (occurrence: None)
  Receive Date: 20240705
  Receipt Date: 20240705
  Transmission Date: 20241017
  Serious: No
  Sender: Public
  Company Number: None

PATIENT
  Age: 68 Year
  Sex: Female

DRUGS (4)
  1. LENVIMA [Suspect]
     Active Substance: LENVATINIB
     Indication: Cervix carcinoma
     Dosage: FREQUENCY : DAILY;?
     Route: 048
     Dates: start: 20240624
  2. KEYTRUDA [Concomitant]
     Active Substance: PEMBROLIZUMAB
  3. BUPROPION [Concomitant]
     Active Substance: BUPROPION
  4. CULTURELLE [Concomitant]
     Active Substance: LACTOBACILLUS RHAMNOSUS

REACTIONS (4)
  - Myalgia [None]
  - Arthralgia [None]
  - Gait disturbance [None]
  - Movement disorder [None]

NARRATIVE: CASE EVENT DATE: 20240705
